FAERS Safety Report 4631172-1 (Version None)
Quarter: 2005Q2

REPORT INFORMATION
  Report Type: 
  Country: None (occurrence: None)
  Receive Date: 20050407
  Receipt Date: 20050407
  Transmission Date: 20051028
  Serious: Yes (Other)
  Sender: FDA-Public Use
  Company Number: None

PATIENT
  Age: 46 Year
  Sex: Female
  Weight: 53.0709 kg

DRUGS (12)
  1. TYSABRI [Suspect]
     Indication: MULTIPLE SCLEROSIS
     Dosage: 300 MG IV INFUSION     1 DOSE
     Route: 042
     Dates: start: 20050223
  2. AVONEX [Concomitant]
  3. ADDERALL XR 10 [Concomitant]
  4. KLONOPIN [Concomitant]
  5. FOSAMAX [Concomitant]
  6. FLAXSEED OIL [Concomitant]
  7. GINGKO [Concomitant]
  8. CITRACAL [Concomitant]
  9. ACIDOPHILUIS [Concomitant]
  10. VITAMIN B COMPLEX CAP [Concomitant]
  11. VITAMIN E [Concomitant]
  12. VITAMIN C [Concomitant]

REACTIONS (5)
  - CYANOPSIA [None]
  - DIARRHOEA [None]
  - HERPES SIMPLEX [None]
  - URINARY TRACT INFECTION [None]
  - VOMITING [None]
